FAERS Safety Report 7510232-1 (Version None)
Quarter: 2011Q2

REPORT INFORMATION
  Report Type: 
  Country: None (occurrence: None)
  Receive Date: 20110527
  Receipt Date: 20110518
  Transmission Date: 20111010
  Serious: Yes (Other)
  Sender: FDA-Public Use
  Company Number: PHHY2011IT42975

PATIENT
  Age: 80 Year
  Sex: Female

DRUGS (4)
  1. CYCLOPHOSPHAMIDE [Suspect]
  2. EXEMESTANE [Suspect]
     Dosage: 25 MG, QD
  3. FLUOROURACIL [Suspect]
  4. METHOTREXATE [Suspect]

REACTIONS (5)
  - RASH [None]
  - BLISTER [None]
  - SKIN ULCER [None]
  - CUTANEOUS VASCULITIS [None]
  - ECCHYMOSIS [None]
